FAERS Safety Report 5192398-4 (Version None)
Quarter: 2006Q4

REPORT INFORMATION
  Report Type: 
  Country: None (occurrence: None)
  Receive Date: 20061227
  Receipt Date: 20061218
  Transmission Date: 20070319
  Serious: Yes (Hospitalization)
  Sender: FDA-Public Use
  Company Number: CA-BOEHRINGER INGELHEIM PHARMACEUTICALS, INC.-2006-CN-00786CN

PATIENT
  Sex: Female

DRUGS (5)
  1. MICARDIS [Suspect]
     Dates: start: 20060522
  2. NORVASC [Concomitant]
  3. NOVOGESIC [Concomitant]
  4. RHOXAL-NITRAZEPAM [Concomitant]
  5. PRAVACHOL [Concomitant]

REACTIONS (3)
  - DYSPNOEA [None]
  - PNEUMONIA [None]
  - PYREXIA [None]
